FAERS Safety Report 5828341-1 (Version None)
Quarter: 2008Q3

REPORT INFORMATION
  Report Type: 
  Country: None (occurrence: None)
  Receive Date: 20080729
  Receipt Date: 20080729
  Transmission Date: 20090109
  Serious: Yes (Hospitalization)
  Sender: FDA-Public Use
  Company Number: None

PATIENT
  Age: 57 Year
  Sex: Male
  Weight: 74.05 kg

DRUGS (2)
  1. ONDANSETRON [Suspect]
     Dosage: 8 MG PRN PO
     Route: 048
     Dates: start: 20080213, end: 20080228
  2. CISPLATIN [Suspect]
     Dosage: 99 MG IV
     Route: 042
     Dates: start: 20080219, end: 20080221

REACTIONS (4)
  - NAUSEA [None]
  - NEPHROPATHY TOXIC [None]
  - VOMITING [None]
  - WEIGHT DECREASED [None]
